FAERS Safety Report 25887987 (Version 1)
Quarter: 2025Q4

REPORT INFORMATION
  Report Type: Spontaneous
  Country: CN (occurrence: CN)
  Receive Date: 20251007
  Receipt Date: 20251007
  Transmission Date: 20260117
  Serious: Yes (Hospitalization, Other)
  Sender: AMGEN
  Company Number: CN-AMGEN-CHNSP2025196158

PATIENT
  Age: 71 Year
  Sex: Female

DRUGS (1)
  1. REPATHA [Suspect]
     Active Substance: EVOLOCUMAB
     Indication: Hyperlipidaemia
     Dosage: 140 MILLIGRAM
     Route: 058
     Dates: start: 20250922, end: 20250922

REACTIONS (3)
  - Ecchymosis [Recovering/Resolving]
  - Injection site induration [Recovering/Resolving]
  - Injection site inflammation [Recovering/Resolving]

NARRATIVE: CASE EVENT DATE: 20250922
